FAERS Safety Report 11982492 (Version 3)
Quarter: 2016Q2

REPORT INFORMATION
  Report Type: Spontaneous
  Country: US (occurrence: US)
  Receive Date: 20160201
  Receipt Date: 20160429
  Transmission Date: 20160815
  Serious: No
  Sender: FDA-Public Use
  Company Number: US-BAYER-2016-013252

PATIENT
  Age: 68 Year
  Sex: Female
  Weight: 49.43 kg

DRUGS (4)
  1. MIRALAX [Suspect]
     Active Substance: POLYETHYLENE GLYCOL 3350
     Indication: COLONOSCOPY
     Dosage: UNK, PRN
     Route: 048
     Dates: start: 2006, end: 20160119
  2. AMOXICILLIN. [Concomitant]
     Active Substance: AMOXICILLIN
     Dosage: UNK
  3. CLARITHROMYCIN. [Concomitant]
     Active Substance: CLARITHROMYCIN
     Dosage: UNK
  4. PRILOSEC [Concomitant]
     Active Substance: OMEPRAZOLE MAGNESIUM
     Dosage: UNK

REACTIONS (10)
  - Feeling abnormal [Recovered/Resolved]
  - Off label use [None]
  - Underdose [None]
  - Fall [Recovered/Resolved]
  - Tremor [Recovered/Resolved]
  - Dyspnoea [None]
  - Limb discomfort [Recovered/Resolved]
  - Blood glucose decreased [None]
  - Dizziness [None]
  - Circumstance or information capable of leading to medication error [None]

NARRATIVE: CASE EVENT DATE: 20160119
